FAERS Safety Report 11272553 (Version 2)
Quarter: 2015Q3

REPORT INFORMATION
  Report Type: Spontaneous
  Country: US (occurrence: US)
  Receive Date: 20150715
  Receipt Date: 20150903
  Transmission Date: 20151125
  Serious: Yes (Other)
  Sender: FDA-Public Use
  Company Number: US-GLAXOSMITHKLINE-US2014GSK054550

PATIENT
  Sex: Male
  Weight: 89.8 kg

DRUGS (1)
  1. VOTRIENT [Suspect]
     Active Substance: PAZOPANIB HYDROCHLORIDE
     Indication: RENAL CANCER
     Dosage: 800 MG, QD
     Route: 048
     Dates: start: 20141103, end: 20141208

REACTIONS (7)
  - Pruritus [Unknown]
  - Haemoptysis [Recovered/Resolved]
  - Nausea [Recovered/Resolved]
  - Haemorrhage [Unknown]
  - Bronchopulmonary aspergillosis [Unknown]
  - Colon cancer recurrent [Unknown]
  - Fatigue [Unknown]
